FAERS Safety Report 4532017-0 (Version None)
Quarter: 2004Q4

REPORT INFORMATION
  Report Type: 
  Country: None (occurrence: None)
  Receive Date: 20041220
  Receipt Date: 20041217
  Transmission Date: 20050328
  Serious: Yes (Hospitalization)
  Sender: FDA-Public Use
  Company Number: US-GLAXOSMITHKLINE-A0537766A

PATIENT
  Sex: Male

DRUGS (1)
  1. CEFTIN [Suspect]
     Dates: start: 20041201

REACTIONS (1)
  - HAEMATOCHEZIA [None]
